FAERS Safety Report 18043035 (Version 1)
Quarter: 2020Q3

REPORT INFORMATION
  Report Type: Spontaneous
  Country: US (occurrence: US)
  Receive Date: 20200717
  Receipt Date: 20200717
  Transmission Date: 20201103
  Serious: Yes (Hospitalization)
  Sender: FDA-Public Use
  Company Number: None

PATIENT
  Age: 70 Year
  Sex: Female

DRUGS (11)
  1. IBRANCE [Suspect]
     Active Substance: PALBOCICLIB
     Indication: BREAST CANCER FEMALE
     Route: 048
  2. XGEVA [Concomitant]
     Active Substance: DENOSUMAB
  3. TYLENOL [Concomitant]
     Active Substance: ACETAMINOPHEN
  4. EROGOCALCIFEROL [Concomitant]
  5. MELOPROLOL [Concomitant]
     Active Substance: METOPROLOL
  6. CLARITIN [Concomitant]
     Active Substance: LORATADINE
  7. MULTIVITAMIN [Concomitant]
     Active Substance: VITAMINS
  8. LEXAPRO [Concomitant]
     Active Substance: ESCITALOPRAM OXALATE
  9. NORCO [Concomitant]
     Active Substance: ACETAMINOPHEN\HYDROCODONE BITARTRATE
  10. LETROZOLE. [Concomitant]
     Active Substance: LETROZOLE
  11. BACLOFEN. [Concomitant]
     Active Substance: BACLOFEN

REACTIONS (2)
  - Therapy interrupted [None]
  - Hip surgery [None]

NARRATIVE: CASE EVENT DATE: 20200703
